FAERS Safety Report 22102837 (Version 1)
Quarter: 2023Q1

REPORT INFORMATION
  Report Type: Report from Study
  Country: CO (occurrence: CO)
  Receive Date: 20230316
  Receipt Date: 20230316
  Transmission Date: 20230418
  Serious: Yes (Death, Other)
  Sender: FDA-Public Use
  Company Number: CO-UNITED THERAPEUTICS-UNT-2023-007190

PATIENT

DRUGS (4)
  1. TREPROSTINIL SODIUM [Suspect]
     Active Substance: TREPROSTINIL SODIUM
     Indication: Pulmonary arterial hypertension
     Dosage: 0.010 ?G/KG, CONTINUING
     Route: 058
     Dates: start: 20230304, end: 20230311
  2. SILDENAFIL [Concomitant]
     Active Substance: SILDENAFIL
     Indication: Product used for unknown indication
     Dosage: UNK, BID (EVERY TWELVE HOURS)
     Route: 065
     Dates: start: 20120430, end: 20230311
  3. BOSENTAN [Concomitant]
     Active Substance: BOSENTAN
     Indication: Product used for unknown indication
     Dosage: UNK, BID (EVERY TWELVE HOURS)
     Route: 065
     Dates: start: 20120430, end: 20230311
  4. SPIRONOLACTONE [Concomitant]
     Active Substance: SPIRONOLACTONE
     Indication: Product used for unknown indication
     Dosage: UNK, QD (EACH 24 HOURS)
     Route: 065
     Dates: start: 20120430, end: 20230311

REACTIONS (1)
  - Cardio-respiratory arrest [Fatal]

NARRATIVE: CASE EVENT DATE: 20230311
